FAERS Safety Report 15593042 (Version 2)
Quarter: 2018Q4

REPORT INFORMATION
  Report Type: Report from Study
  Country: DE (occurrence: DE)
  Receive Date: 20181107
  Receipt Date: 20181221
  Transmission Date: 20190205
  Serious: Yes (Hospitalization)
  Sender: FDA-Public Use
  Company Number: DE-TEVA-2018-DE-971818

PATIENT
  Age: 56 Year
  Sex: Male
  Weight: 95 kg

DRUGS (8)
  1. MST [Concomitant]
     Indication: SPINAL PAIN
     Dosage: 60 MILLIGRAM DAILY; DAILY DOSE: 60 MG MILLIGRAM(S) EVERY DAY
     Route: 048
     Dates: start: 20150112
  2. POMALIDOMIDE [Suspect]
     Active Substance: POMALIDOMIDE
     Indication: PLASMA CELL MYELOMA
     Route: 048
     Dates: start: 20150414, end: 20150504
  3. DEXAMETHASONE. [Suspect]
     Active Substance: DEXAMETHASONE
     Indication: PLASMA CELL MYELOMA
     Route: 065
     Dates: start: 20150414, end: 20150505
  4. CAPROS [Concomitant]
     Indication: SPINAL PAIN
     Route: 048
     Dates: start: 20140124
  5. GABAPENTIN. [Concomitant]
     Active Substance: GABAPENTIN
     Indication: NEUROPATHY PERIPHERAL
     Dosage: 300 MILLIGRAM DAILY; DAILY DOSE: 300 MG MILLIGRAM(S) EVERY DAY
     Route: 048
     Dates: start: 20140513, end: 201503
  6. MILGAMMA [Concomitant]
     Active Substance: VITAMIN B
     Indication: NEUROPATHY PERIPHERAL
     Dosage: 300 MILLIGRAM DAILY; DAILY DOSE: 300 MG MILLIGRAM(S) EVERY DAY
     Route: 048
     Dates: start: 20140513, end: 201503
  7. DEXAMETHASONE. [Suspect]
     Active Substance: DEXAMETHASONE
     Route: 065
     Dates: start: 20150512, end: 20150519
  8. POMALIDOMIDE [Suspect]
     Active Substance: POMALIDOMIDE
     Route: 048
     Dates: start: 20150512, end: 20150525

REACTIONS (2)
  - Peripheral swelling [Recovering/Resolving]
  - Thrombosis [Recovered/Resolved]

NARRATIVE: CASE EVENT DATE: 20150519
